FAERS Safety Report 7321058-6 (Version None)
Quarter: 2011Q1

REPORT INFORMATION
  Report Type: 
  Country: None (occurrence: None)
  Receive Date: 20110126
  Receipt Date: 20110104
  Transmission Date: 20110831
  Serious: Yes (Hospitalization, Other)
  Sender: FDA-Public Use
  Company Number: A-US2010-42785

PATIENT
  Age: 57 Year
  Sex: Female
  Weight: 64.9 kg

DRUGS (4)
  1. TRACLEER [Suspect]
     Indication: PULMONARY ARTERIAL HYPERTENSION
     Dosage: 62.5 MG, BID, ORAL, 62.5 MG, BID, ORAL
     Route: 048
     Dates: start: 20101130, end: 20101210
  2. TRACLEER [Suspect]
     Indication: PULMONARY ARTERIAL HYPERTENSION
     Dosage: 62.5 MG, BID, ORAL, 62.5 MG, BID, ORAL
     Route: 048
     Dates: start: 20090601
  3. REVATIO [Concomitant]
  4. EPOPROSTENOL SODIUM [Suspect]
     Indication: PULMONARY ARTERIAL HYPERTENSION
     Dosage: 20.25 NG/KG, PER MIN, IV DRIP
     Route: 041
     Dates: start: 20100730

REACTIONS (6)
  - ANAEMIA [None]
  - RED BLOOD CELL COUNT DECREASED [None]
  - NAUSEA [None]
  - DIARRHOEA [None]
  - FATIGUE [None]
  - VOMITING [None]
